FAERS Safety Report 6038985-2 (Version None)
Quarter: 2009Q1

REPORT INFORMATION
  Report Type: 
  Country: None (occurrence: None)
  Receive Date: 20090115
  Receipt Date: 20090106
  Transmission Date: 20090719
  Serious: Yes (Hospitalization)
  Sender: FDA-Public Use
  Company Number: JP-MERCK-0812USA01700

PATIENT
  Age: 5 Year
  Sex: Male

DRUGS (7)
  1. SINGULAIR [Suspect]
     Indication: ASTHMA
     Route: 048
     Dates: start: 20081006, end: 20081109
  2. CLARITHROMYCIN [Suspect]
     Indication: BRONCHITIS
     Route: 048
     Dates: start: 20081014, end: 20081023
  3. ASVERIN [Concomitant]
     Route: 048
     Dates: start: 20081006, end: 20081030
  4. MUCODYNE [Concomitant]
     Route: 048
     Dates: start: 20081006, end: 20081030
  5. MUCOSAL [Concomitant]
     Route: 048
     Dates: start: 20081006, end: 20081030
  6. TULOBUTEROL [Concomitant]
     Route: 065
     Dates: start: 20081006, end: 20081030
  7. ZADITEN [Concomitant]
     Route: 048
     Dates: start: 20081107, end: 20081130

REACTIONS (1)
  - IDIOPATHIC THROMBOCYTOPENIC PURPURA [None]
